FAERS Safety Report 9733688 (Version 6)
Quarter: 2016Q2

REPORT INFORMATION
  Report Type: Spontaneous
  Country: US (occurrence: US)
  Receive Date: 20131205
  Receipt Date: 20160427
  Transmission Date: 20160815
  Serious: Yes (Hospitalization, Disabling, Other)
  Sender: FDA-Public Use
  Company Number: US-MERCK-1312USA001264

PATIENT
  Sex: Female
  Weight: 109.75 kg

DRUGS (7)
  1. ALENDRONATE SODIUM. [Suspect]
     Active Substance: ALENDRONATE SODIUM
     Indication: OSTEOPOROSIS
     Dosage: 70 MG, UNK
     Route: 048
     Dates: start: 2000, end: 2011
  2. CALCIUM (UNSPECIFIED) (+) VITAMINS (UNSPECIFIED) [Concomitant]
     Active Substance: CALCIUM\VITAMINS
     Indication: ROUTINE HEALTH MAINTENANCE
     Dosage: 1300 MG, QD
     Dates: start: 2000
  3. FOSAMAX [Suspect]
     Active Substance: ALENDRONATE SODIUM
     Indication: OSTEOPOROSIS
     Dosage: 70 MG, QW
     Route: 048
     Dates: start: 2000, end: 2008
  4. FOSAMAX [Suspect]
     Active Substance: ALENDRONATE SODIUM
     Dosage: 70 MG, QW
     Route: 048
     Dates: start: 20091119, end: 20110829
  5. ALENDRONATE SODIUM. [Suspect]
     Active Substance: ALENDRONATE SODIUM
     Indication: OSTEOPOROSIS
  6. ALENDRONATE SODIUM. [Suspect]
     Active Substance: ALENDRONATE SODIUM
     Indication: OSTEOPOROSIS PROPHYLAXIS
     Dosage: UNK
     Route: 048
     Dates: start: 200802, end: 2011
  7. ALENDRONATE SODIUM. [Suspect]
     Active Substance: ALENDRONATE SODIUM
     Dosage: 70 MG, UNK
     Dates: start: 20090103, end: 200910

REACTIONS (19)
  - Anaemia postoperative [Recovering/Resolving]
  - Atelectasis [Unknown]
  - Atrial fibrillation [Not Recovered/Not Resolved]
  - Blood cholesterol increased [Unknown]
  - Pain in extremity [Not Recovered/Not Resolved]
  - Low turnover osteopathy [Unknown]
  - Femur fracture [Recovered/Resolved with Sequelae]
  - Osteoporosis [Unknown]
  - Tooth extraction [Unknown]
  - Rheumatoid arthritis [Unknown]
  - Drug ineffective [Unknown]
  - Fall [Unknown]
  - Haematoma [Unknown]
  - Hip fracture [Unknown]
  - Impaired healing [Recovered/Resolved]
  - Diabetes mellitus [Unknown]
  - Osteopenia [Unknown]
  - Hypertension [Unknown]
  - Back pain [Unknown]

NARRATIVE: CASE EVENT DATE: 20020502
